FAERS Safety Report 5214771-8 (Version None)
Quarter: 2007Q1

REPORT INFORMATION
  Report Type: 
  Country: None (occurrence: None)
  Receive Date: 20070122
  Receipt Date: 20070118
  Transmission Date: 20070707
  Serious: Yes (Hospitalization)
  Sender: FDA-Public Use
  Company Number: DE-BRISTOL-MYERS SQUIBB COMPANY-13637640

PATIENT
  Age: 72 Year
  Sex: Female
  Weight: 71 kg

DRUGS (4)
  1. CAPOZIDE TABS 25 MG/25 MG [Suspect]
     Indication: HYPERTENSION
     Route: 048
  2. METOHEXAL [Concomitant]
     Indication: HYPERTENSION
  3. PANTOZOL [Concomitant]
     Indication: GASTRITIS
  4. METFORMIN HCL [Concomitant]
     Indication: DIABETES MELLITUS NON-INSULIN-DEPENDENT
     Route: 048

REACTIONS (2)
  - EPIGLOTTIC OEDEMA [None]
  - SWELLING [None]
